FAERS Safety Report 23151043 (Version 1)
Quarter: 2023Q4

REPORT INFORMATION
  Report Type: Report from Study
  Country: US (occurrence: US)
  Receive Date: 20231106
  Receipt Date: 20231106
  Transmission Date: 20240109
  Serious: Yes (Other)
  Sender: FDA-Public Use
  Company Number: US-ABBVIE-4769696

PATIENT
  Sex: Female

DRUGS (2)
  1. VENCLEXTA [Suspect]
     Active Substance: VENETOCLAX
     Indication: Mantle cell lymphoma
     Dosage: 400 MILLIGRAM
     Route: 048
     Dates: start: 20200227
  2. BRUKINSA [Suspect]
     Active Substance: ZANUBRUTINIB
     Indication: Mantle cell lymphoma
     Route: 065
     Dates: start: 20200227

REACTIONS (8)
  - Eye operation [Unknown]
  - Contusion [Unknown]
  - Platelet count decreased [Unknown]
  - Injury [Recovering/Resolving]
  - Fall [Unknown]
  - Eye contusion [Recovered/Resolved]
  - Periorbital haemorrhage [Recovered/Resolved]
  - Post procedural haemorrhage [Unknown]
